FAERS Safety Report 8647168 (Version 2)
Quarter: 2013Q1

REPORT INFORMATION
  Report Type: Spontaneous
  Country: FR (occurrence: FR)
  Receive Date: 20120703
  Receipt Date: 20130109
  Transmission Date: 20140127
  Serious: Yes (Hospitalization, Disabling)
  Sender: FDA-Public Use
  Company Number: FR-PFIZER INC-2012156904

PATIENT
  Age: 75 Year
  Sex: Female

DRUGS (5)
  1. CORDARONE [Suspect]
     Indication: ATRIAL FIBRILLATION
     Dosage: 200 MG DAILY
     Route: 048
     Dates: start: 201112, end: 20120525
  2. ALDACTAZINE [Concomitant]
     Dosage: UNK
     Dates: start: 201112
  3. PREVISCAN [Concomitant]
     Dosage: UNK
     Dates: start: 201112
  4. TANGANIL [Concomitant]
     Dosage: UNK
     Dates: start: 201112
  5. LERCANIDIPINE [Concomitant]
     Dosage: UNK
     Dates: start: 201112

REACTIONS (1)
  - Cerebellar syndrome [Recovering/Resolving]
